FAERS Safety Report 9060679 (Version 1)
Quarter: 2013Q1

REPORT INFORMATION
  Report Type: Report from Study
  Country: DE (occurrence: DE)
  Receive Date: 20130204
  Receipt Date: 20130204
  Transmission Date: 20140127
  Serious: Yes (Death, Hospitalization)
  Sender: FDA-Public Use
  Company Number: DE-ROCHE-750638

PATIENT
  Age: 73 Year
  Sex: Female
  Weight: 63 kg

DRUGS (10)
  1. TOCILIZUMAB [Suspect]
     Indication: RHEUMATOID ARTHRITIS
     Route: 042
     Dates: start: 20100412, end: 20100610
  2. TOCILIZUMAB [Suspect]
     Route: 065
  3. TOCILIZUMAB [Suspect]
     Route: 065
  4. PREDNISOLON [Concomitant]
     Indication: RHEUMATOID ARTHRITIS
     Route: 065
  5. PANTOPRAZOLE [Concomitant]
     Route: 065
  6. CALCILAC [Concomitant]
     Route: 065
  7. FERRO SANOL DUODENAL [Concomitant]
     Route: 065
  8. AMLODIPIN [Concomitant]
     Route: 065
  9. NEBILET [Concomitant]
     Route: 065
  10. DUROGESIC [Concomitant]
     Route: 062

REACTIONS (2)
  - Anaemia [Not Recovered/Not Resolved]
  - Death [Fatal]
